FAERS Safety Report 12315413 (Version 1)
Quarter: 2016Q2

REPORT INFORMATION
  Report Type: Spontaneous
  Country: US (occurrence: US)
  Receive Date: 20160428
  Receipt Date: 20160428
  Transmission Date: 20160815
  Serious: Yes (Hospitalization, Other)
  Sender: FDA-Public Use
  Company Number: US-INCYTE CORPORATION-2016IN002360

PATIENT
  Sex: Male

DRUGS (2)
  1. HYDROXYUREA. [Interacting]
     Active Substance: HYDROXYUREA
     Indication: POLYCYTHAEMIA
     Dosage: UNK
  2. JAKAFI [Suspect]
     Active Substance: RUXOLITINIB
     Indication: POLYCYTHAEMIA
     Route: 048

REACTIONS (4)
  - Skin cancer [Unknown]
  - Drug interaction [Unknown]
  - Splenectomy [Unknown]
  - Renal pain [Unknown]
